FAERS Safety Report 8465702 (Version 3)
Quarter: 2012Q4

REPORT INFORMATION
  Report Type: 
  Country: US (occurrence: US)
  Receive Date: 20120319
  Receipt Date: 20120904
  Transmission Date: 20130627
  Serious: Yes (Other)
  Sender: FDA-Public Use
  Company Number: US-BAYER-2012-025606

PATIENT
  Age: 27 Year
  Sex: Female
  Weight: 86.17 kg

DRUGS (6)
  1. YASMIN [Suspect]
     Indication: PREMENSTRUAL SYNDROME
     Dosage: UNK
     Dates: start: 2002, end: 2008
  2. YASMIN [Suspect]
     Indication: CONTRACEPTION
  3. OCELLA [Suspect]
     Indication: PREMENSTRUAL SYNDROME
     Dosage: UNK
     Dates: start: 2002, end: 2008
  4. OCELLA [Suspect]
     Indication: CONTRACEPTION
  5. GAS X [Concomitant]
  6. IBUPROFEN [Concomitant]
     Dosage: UNK UNK, PRN

REACTIONS (7)
  - Cholelithiasis [None]
  - Pain [None]
  - Injury [None]
  - General physical health deterioration [None]
  - Anxiety [None]
  - Emotional distress [None]
  - Cholecystitis chronic [None]
